FAERS Safety Report 6314768-0 (Version None)
Quarter: 2009Q3

REPORT INFORMATION
  Report Type: 
  Country: None (occurrence: None)
  Receive Date: 20090819
  Receipt Date: 20090811
  Transmission Date: 20100115
  Serious: Yes (Disabling)
  Sender: FDA-Public Use
  Company Number: JP-ASTRAZENECA-2009SE02569

PATIENT
  Age: 62 Year
  Sex: Male

DRUGS (3)
  1. IRESSA [Suspect]
     Indication: LUNG NEOPLASM MALIGNANT
     Route: 048
     Dates: start: 20090124
  2. GEMZAR [Suspect]
     Indication: LUNG NEOPLASM MALIGNANT
     Dosage: 1200 MG, TOTAL OF FIVE COURSES; 12-MAY-2008, 19-MAY-2008, 16-JUL-2008, 06-AUG-2008, AND 27-AUG-2008.
     Route: 041
     Dates: start: 20080512, end: 20080827
  3. BRIPLATIN [Suspect]
     Indication: LUNG NEOPLASM MALIGNANT
     Dosage: 115 MG,A TOTAL OF FIVE COURSES; 12-MAY-2008, 19-MAY-2008, 16-JUL-2008, 06-AUG-2008, AND 27-AUG-2008.
     Route: 041
     Dates: start: 20080512, end: 20080827

REACTIONS (6)
  - CEREBRAL VENTRICLE DILATATION [None]
  - GAIT DISTURBANCE [None]
  - HYDROCEPHALUS [None]
  - INTRACRANIAL PRESSURE INCREASED [None]
  - SYNCOPE [None]
  - VOMITING [None]
